FAERS Safety Report 8912530 (Version 2)
Quarter: 2012Q4

REPORT INFORMATION
  Report Type: 
  Country: US (occurrence: US)
  Receive Date: 20121116
  Receipt Date: 20121227
  Transmission Date: 20130627
  Serious: Yes (Hospitalization)
  Sender: FDA-Public Use
  Company Number: US-MERCK-1211USA006027

PATIENT
  Sex: Female

DRUGS (2)
  1. SAPHRIS [Suspect]
     Dosage: 5 mg, UNK
  2. SAPHRIS [Suspect]
     Dosage: 10 mg, UNK

REACTIONS (3)
  - Gastritis [Unknown]
  - Nausea [Unknown]
  - Vomiting [Unknown]
